APPROVED DRUG PRODUCT: PROPRANOLOL HYDROCHLORIDE
Active Ingredient: PROPRANOLOL HYDROCHLORIDE
Strength: 120MG
Dosage Form/Route: CAPSULE, EXTENDED RELEASE;ORAL
Application: A078022 | Product #003
Applicant: EXTROVIS AG
Approved: Feb 15, 2007 | RLD: No | RS: No | Type: DISCN